FAERS Safety Report 9242252 (Version 1)
Quarter: 2013Q2

REPORT INFORMATION
  Report Type: Spontaneous
  Country: GB (occurrence: GB)
  Receive Date: 20130419
  Receipt Date: 20130419
  Transmission Date: 20140414
  Serious: Yes (Hospitalization)
  Sender: FDA-Public Use
  Company Number: GB-GE HEALTHCARE MEDICAL DIAGNOSTICS-VISP-NO-1304S-0543

PATIENT
  Age: 43 Year
  Sex: Female

DRUGS (2)
  1. VISIPAQUE [Suspect]
     Indication: LYMPHOMA
     Route: 042
     Dates: start: 20130327, end: 20130327
  2. VISIPAQUE [Suspect]
     Indication: DIAGNOSTIC PROCEDURE

REACTIONS (6)
  - Circulatory collapse [Unknown]
  - Chest pain [Unknown]
  - Tachycardia [Unknown]
  - Dizziness [Unknown]
  - Nausea [Unknown]
  - Headache [Unknown]
